FAERS Safety Report 9706834 (Version 1)
Quarter: 2013Q4

REPORT INFORMATION
  Report Type: Spontaneous
  Country: LB (occurrence: LB)
  Receive Date: 20131125
  Receipt Date: 20131125
  Transmission Date: 20140711
  Serious: Yes (Death)
  Sender: FDA-Public Use
  Company Number: PHHY2013LB135095

PATIENT
  Sex: Female

DRUGS (1)
  1. AFINITOR [Suspect]

REACTIONS (1)
  - Death [Fatal]
